FAERS Safety Report 19435688 (Version 2)
Quarter: 2021Q2

REPORT INFORMATION
  Report Type: Spontaneous
  Country: NL (occurrence: NL)
  Receive Date: 20210618
  Receipt Date: 20210624
  Transmission Date: 20210717
  Serious: Yes (Death)
  Sender: FDA-Public Use
  Company Number: NL-TEVA-2021-NL-1922650

PATIENT
  Sex: Female

DRUGS (1)
  1. OCTREOTIDE INJVLST 0,1MG/ML / BRAND NAME NOT SPECIFIED [Suspect]
     Active Substance: OCTREOTIDE
     Indication: GASTROINTESTINAL STOMA COMPLICATION
     Dosage: 3DD1 1 ML:THERAPY END DATE:ASKU
     Dates: start: 20210524

REACTIONS (3)
  - Dizziness [Fatal]
  - Myoclonus [Fatal]
  - Cardiac arrest [Fatal]
